FAERS Safety Report 26209165 (Version 1)
Quarter: 2025Q4

REPORT INFORMATION
  Report Type: Spontaneous
  Country: US (occurrence: US)
  Receive Date: 20251229
  Receipt Date: 20251229
  Transmission Date: 20260117
  Serious: Yes (Death, Life-Threatening, Other)
  Sender: PFIZER
  Company Number: US-PFIZER INC-PV202500147727

PATIENT
  Age: 75 Year
  Sex: Male

DRUGS (4)
  1. HEPARIN SODIUM [Suspect]
     Active Substance: HEPARIN SODIUM
     Dosage: UNK
     Route: 042
  2. FUROSEMIDE [Suspect]
     Active Substance: FUROSEMIDE
     Dosage: UNK
  3. ASPIRIN [Suspect]
     Active Substance: ASPIRIN
     Dosage: UNK
  4. ALLOPURINOL [Suspect]
     Active Substance: ALLOPURINOL
     Dosage: UNK

REACTIONS (2)
  - Cardiac arrest [Fatal]
  - Haemodynamic instability [Fatal]
